FAERS Safety Report 6183753-4 (Version None)
Quarter: 2009Q2

REPORT INFORMATION
  Report Type: 
  Country: None (occurrence: None)
  Receive Date: 20090506
  Receipt Date: 20090506
  Transmission Date: 20091009
  Serious: Yes (Other)
  Sender: FDA-Public Use
  Company Number: None

PATIENT
  Sex: Female
  Weight: 68 kg

DRUGS (19)
  1. ALBUMIN (HUMAN) [Suspect]
     Indication: SUBARACHNOID HAEMORRHAGE
     Dosage: 1.25G/K DAILY X 7(IV)
     Route: 042
  2. TYLENOL [Concomitant]
  3. FENTANYL [Concomitant]
  4. MORPHINE [Concomitant]
  5. LASIX [Concomitant]
  6. POTASSIUM PHOSPHATES [Concomitant]
  7. NIMODIPINE [Concomitant]
  8. HEPARIN [Concomitant]
  9. GRAVOL TAB [Concomitant]
  10. TYLENOL [Concomitant]
  11. HYDRALAZINE HCL [Concomitant]
  12. CODEINE SUL TAB [Concomitant]
  13. ZOFRAN [Concomitant]
  14. TORADOL [Concomitant]
  15. LACTULOSE [Concomitant]
  16. PERCOCET [Concomitant]
  17. MOM+CASCARA [Concomitant]
  18. BISACODYYL SUPP [Concomitant]
  19. COLACE [Concomitant]

REACTIONS (3)
  - FLUID OVERLOAD [None]
  - PLEURAL EFFUSION [None]
  - PULMONARY OEDEMA [None]
